FAERS Safety Report 8504127-4 (Version None)
Quarter: 2012Q2

REPORT INFORMATION
  Report Type: 
  Country: None (occurrence: None)
  Receive Date: 20120405
  Receipt Date: 20101101
  Transmission Date: 20120825
  Serious: Yes (Other)
  Sender: FDA-Public Use
  Company Number: PHHY2010US74430

PATIENT
  Age: 67 Year
  Sex: Female

DRUGS (24)
  1. POTASSIUM CHLORIDE [Concomitant]
  2. METOPROLOL TARTRATE [Concomitant]
  3. ALBUTEROL SULFATE [Concomitant]
  4. SYSTANE (MACROGOL, PROPYLENE GLYCOL) [Concomitant]
  5. BROVANA (ARFORMOTEROL TARTRATE) [Concomitant]
  6. SPIRIVA [Concomitant]
  7. RECLAST [Suspect]
     Indication: OSTEOPOROSIS
     Dosage: 5 MG, INTRAVENOUS
     Route: 042
     Dates: start: 20100915
  8. VITAMIN D [Concomitant]
  9. CALCIUM CARBONATE [Concomitant]
  10. PROAIR (FLUTICASONE PROPIONATE) [Concomitant]
  11. XANAX [Concomitant]
  12. ALBUTEROL [Concomitant]
  13. PRIMIDONE [Concomitant]
  14. ACETAMINOPHEN [Suspect]
  15. ZOCOR [Concomitant]
  16. ASPIRIN [Concomitant]
  17. COMBIVENT (IPRATROPIUM BROMIDE, SALBUTAMOL SULFATE) INHALER [Concomitant]
  18. ZOLOFT [Concomitant]
  19. AMBIEN [Concomitant]
  20. FOLIC ACID [Concomitant]
  21. HYDROCHLOROTHIAZIDE [Concomitant]
  22. OMEPRAZOLE [Concomitant]
  23. PREDNISONE TAB [Concomitant]
  24. RESTASIS [Concomitant]

REACTIONS (3)
  - FEELING ABNORMAL [None]
  - BACK PAIN [None]
  - NECK PAIN [None]
